FAERS Safety Report 11561283 (Version 2)
Quarter: 2015Q4

REPORT INFORMATION
  Report Type: Spontaneous
  Country: FR (occurrence: FR)
  Receive Date: 20150928
  Receipt Date: 20151110
  Transmission Date: 20160304
  Serious: Yes (Hospitalization)
  Sender: FDA-Public Use
  Company Number: FR-PFIZER INC-2015320009

PATIENT
  Age: 48 Year
  Sex: Male

DRUGS (7)
  1. TAZOCILLINE [Suspect]
     Active Substance: PIPERACILLIN SODIUM\TAZOBACTAM SODIUM
     Indication: LUNG ABSCESS
     Dosage: 4 G, 3X/DAY
     Route: 041
     Dates: start: 20150820, end: 20150820
  2. FIBRINOGEN HUMAN [Suspect]
     Active Substance: FIBRINOGEN HUMAN
     Dosage: UNK
     Dates: start: 20150820
  3. AMIKACIN [Suspect]
     Active Substance: AMIKACIN
     Indication: LUNG ABSCESS
     Dosage: 1800 MG, DAILY
     Route: 041
     Dates: start: 20150820, end: 20150820
  4. ZYVOXID [Concomitant]
     Active Substance: LINEZOLID
     Indication: STAPHYLOCOCCAL ABSCESS
  5. ZYVOXID [Concomitant]
     Active Substance: LINEZOLID
     Indication: LUNG ABSCESS
     Dosage: 600 MG, 2X/DAY
     Route: 042
     Dates: start: 20150816
  6. TAZOCILLINE [Suspect]
     Active Substance: PIPERACILLIN SODIUM\TAZOBACTAM SODIUM
     Indication: STAPHYLOCOCCAL ABSCESS
  7. AMIKACIN [Suspect]
     Active Substance: AMIKACIN
     Indication: STAPHYLOCOCCAL ABSCESS

REACTIONS (3)
  - Face oedema [Recovered/Resolved]
  - Eyelid oedema [Recovered/Resolved]
  - Rash [Recovered/Resolved]

NARRATIVE: CASE EVENT DATE: 20150820
